FAERS Safety Report 7285526-8 (Version None)
Quarter: 2011Q1

REPORT INFORMATION
  Report Type: 
  Country: None (occurrence: None)
  Receive Date: 20110210
  Receipt Date: 20101222
  Transmission Date: 20110831
  Serious: Yes (Hospitalization, Other)
  Sender: FDA-Public Use
  Company Number: US-BAYER-201024988NA

PATIENT
  Sex: Female

DRUGS (5)
  1. YASMIN [Suspect]
     Indication: CONTRACEPTION
     Dosage: UNK
     Route: 048
     Dates: start: 20040101, end: 20080101
  2. LOVENOX [Concomitant]
     Dosage: UNK
     Dates: start: 20050601
  3. ALBUTEROL [Concomitant]
     Route: 055
  4. YAZ [Suspect]
     Indication: CONTRACEPTION
     Dosage: UNK
     Dates: start: 20070101, end: 20080101
  5. COUMADIN [Concomitant]
     Dosage: UNK
     Dates: start: 20050601

REACTIONS (1)
  - PULMONARY EMBOLISM [None]
